FAERS Safety Report 4836230-4 (Version None)
Quarter: 2005Q4

REPORT INFORMATION
  Report Type: 
  Country: None (occurrence: None)
  Receive Date: 20051118
  Receipt Date: 20051104
  Transmission Date: 20060501
  Serious: Yes (Hospitalization)
  Sender: FDA-Public Use
  Company Number: 2005-04325

PATIENT
  Age: 74 Year
  Sex: Female

DRUGS (2)
  1. FERRLECIT [Suspect]
     Dosage: INTRAVENOUS
     Route: 042
  2. PROCRIT [Concomitant]

REACTIONS (2)
  - INJECTION SITE REACTION [None]
  - SKIN NECROSIS [None]
